FAERS Safety Report 8015552-2 (Version None)
Quarter: 2011Q4

REPORT INFORMATION
  Report Type: 
  Country: None (occurrence: None)
  Receive Date: 20111230
  Receipt Date: 20111223
  Transmission Date: 20120403
  Serious: Yes (Other)
  Sender: FDA-Public Use
  Company Number: GB-SHIRE-ALL1-2011-05094

PATIENT
  Sex: Male

DRUGS (1)
  1. REPLAGAL [Suspect]
     Indication: FABRY'S DISEASE
     Dosage: 10.5 MG EVERY 2 WEEKS
     Route: 041
     Dates: start: 20100901

REACTIONS (2)
  - EPILEPSY [None]
  - BLOOD GLUCOSE INCREASED [None]
